FAERS Safety Report 22834923 (Version 6)
Quarter: 2023Q4

REPORT INFORMATION
  Report Type: Spontaneous
  Country: CA (occurrence: CA)
  Receive Date: 20230817
  Receipt Date: 20231228
  Transmission Date: 20240110
  Serious: Yes (Hospitalization)
  Sender: FDA-Public Use
  Company Number: CA-CELLTRION INC.-2023CA016109

PATIENT

DRUGS (5)
  1. INFLECTRA [Suspect]
     Active Substance: INFLIXIMAB-DYYB
     Indication: Colitis ulcerative
     Dosage: 700 MG, INDUCTION: WEEK 0, 2 AND 6 (PRESCRIBED EVERY 8 WEEKS)
     Route: 042
     Dates: start: 20230804
  2. INFLECTRA [Suspect]
     Active Substance: INFLIXIMAB-DYYB
     Dosage: 700 MG, INDUCTION: WEEK 2 AND 6
     Route: 042
     Dates: start: 202308
  3. INFLECTRA [Suspect]
     Active Substance: INFLIXIMAB-DYYB
     Dosage: 700 MG, INDUCTION: WEEK 2 AND 6
     Route: 042
     Dates: start: 20230913
  4. INFLECTRA [Suspect]
     Active Substance: INFLIXIMAB-DYYB
     Dosage: 700 MG, INDUCTION: WEEK 0, 2 AND 6 (AFTER 8 WEEKS)
     Route: 042
     Dates: start: 20231106
  5. INFLECTRA [Suspect]
     Active Substance: INFLIXIMAB-DYYB
     Dosage: 700 MG, EVERY 6 WEEK
     Route: 042
     Dates: start: 20231218

REACTIONS (7)
  - Muscle spasms [Unknown]
  - Condition aggravated [Recovered/Resolved]
  - Poor venous access [Unknown]
  - Off label use [Unknown]
  - Off label use [Unknown]
  - Off label use [Unknown]
  - Intentional product use issue [Unknown]

NARRATIVE: CASE EVENT DATE: 20230101
